FAERS Safety Report 8499122-8 (Version None)
Quarter: 2012Q2

REPORT INFORMATION
  Report Type: 
  Country: None (occurrence: None)
  Receive Date: 20120405
  Receipt Date: 20100308
  Transmission Date: 20120825
  Serious: Yes (Disabling)
  Sender: FDA-Public Use
  Company Number: PHHY2010US14352

PATIENT
  Age: 70 Year
  Sex: Female

DRUGS (6)
  1. RECLAST [Suspect]
     Indication: OSTEOPENIA
     Dosage: 5 MG, INTRAVENOUS
     Route: 042
     Dates: start: 20100104
  2. SPIRONOLACTONE [Concomitant]
  3. GABAPENTIN [Concomitant]
  4. FUROSEMIDE (FUROSEMIDE) [Concomitant]
  5. ESTROPIPATE [Concomitant]
  6. LIPITOR [Concomitant]

REACTIONS (4)
  - IMPAIRED DRIVING ABILITY [None]
  - ACTIVITIES OF DAILY LIVING IMPAIRED [None]
  - MUSCULOSKELETAL STIFFNESS [None]
  - NECK PAIN [None]
